FAERS Safety Report 19233358 (Version 3)
Quarter: 2022Q1

REPORT INFORMATION
  Report Type: Spontaneous
  Country: US (occurrence: None)
  Receive Date: 20210507
  Receipt Date: 20220222
  Transmission Date: 20220423
  Serious: Yes (Other)
  Sender: FDA-Public Use
  Company Number: 2021A390721

PATIENT
  Age: 75 Year
  Sex: Female
  Weight: 99.8 kg

DRUGS (21)
  1. PRILOSEC [Suspect]
     Active Substance: OMEPRAZOLE MAGNESIUM
     Indication: Gastrooesophageal reflux disease
     Route: 048
     Dates: start: 2009, end: 2017
  2. PRILOSEC [Suspect]
     Active Substance: OMEPRAZOLE MAGNESIUM
     Indication: Gastrooesophageal reflux disease
     Dosage: OMEPRAZOLE GENERIC
     Route: 065
     Dates: start: 2008, end: 2017
  3. PRILOSEC OTC [Suspect]
     Active Substance: OMEPRAZOLE MAGNESIUM
     Indication: Gastrooesophageal reflux disease
     Route: 048
     Dates: start: 2009, end: 2017
  4. PRAVASTATIN [Concomitant]
     Active Substance: PRAVASTATIN
     Indication: Blood cholesterol abnormal
  5. LISINOPRIL [Concomitant]
     Active Substance: LISINOPRIL
     Indication: Hypertension
  6. TORSEMIDE [Concomitant]
     Active Substance: TORSEMIDE
     Indication: Oedema
  7. SIMVASTATIN [Concomitant]
     Active Substance: SIMVASTATIN
     Indication: Blood cholesterol abnormal
  8. TRAMADOL [Concomitant]
     Active Substance: TRAMADOL
     Indication: Pain
  9. GABAPENTIN [Concomitant]
     Active Substance: GABAPENTIN
  10. CARVEDILOL [Concomitant]
     Active Substance: CARVEDILOL
  11. LANTUS [Concomitant]
     Active Substance: INSULIN GLARGINE
  12. PACERONE [Concomitant]
     Active Substance: AMIODARONE HYDROCHLORIDE
  13. HUMALOG [Concomitant]
     Active Substance: INSULIN LISPRO
  14. AMIODARONE [Concomitant]
     Active Substance: AMIODARONE
  15. ACETAMINOPHEN\HYDROCODONE [Concomitant]
     Active Substance: ACETAMINOPHEN\HYDROCODONE
  16. ONDANSETRON [Concomitant]
     Active Substance: ONDANSETRON
  17. GAVILAX [Concomitant]
     Active Substance: POLYETHYLENE GLYCOL 3350
  18. NITROSTAT [Concomitant]
     Active Substance: NITROGLYCERIN
  19. NOVOLOG [Concomitant]
     Active Substance: INSULIN ASPART
  20. ISOSORBIDE MONONITRATE [Concomitant]
     Active Substance: ISOSORBIDE MONONITRATE
  21. BRILINTA [Concomitant]
     Active Substance: TICAGRELOR

REACTIONS (5)
  - Chronic kidney disease [Not Recovered/Not Resolved]
  - End stage renal disease [Not Recovered/Not Resolved]
  - Acute kidney injury [Unknown]
  - Hyperparathyroidism secondary [Unknown]
  - Renal failure [Unknown]

NARRATIVE: CASE EVENT DATE: 20150101
